FAERS Safety Report 4681408-6 (Version None)
Quarter: 2005Q2

REPORT INFORMATION
  Report Type: 
  Country: None (occurrence: None)
  Receive Date: 20050603
  Receipt Date: 20050524
  Transmission Date: 20051028
  Serious: Yes (Hospitalization)
  Sender: FDA-Public Use
  Company Number: IT-JNJFOC-20050503930

PATIENT
  Age: 76 Year
  Sex: Female
  Weight: 50 kg

DRUGS (3)
  1. REMICADE [Suspect]
     Indication: CROHN'S DISEASE
     Route: 042
  2. DELTACORTENE [Suspect]
     Indication: CROHN'S DISEASE
     Route: 049
  3. ZANTAC [Suspect]
     Indication: CROHN'S DISEASE
     Route: 049

REACTIONS (1)
  - GASTRIC PERFORATION [None]
